FAERS Safety Report 8799272 (Version 7)
Quarter: 2014Q4

REPORT INFORMATION
  Report Type: Spontaneous
  Country: US (occurrence: US)
  Receive Date: 20120920
  Receipt Date: 20141027
  Transmission Date: 20150529
  Serious: Yes (Hospitalization, Disabling, Other)
  Sender: FDA-Public Use
  Company Number: US-009507513-1209USA004246

PATIENT
  Sex: Female

DRUGS (6)
  1. VITAMINS (UNSPECIFIED) [Concomitant]
     Active Substance: VITAMINS
     Indication: ROUTINE HEALTH MAINTENANCE
     Dosage: UNK
     Dates: start: 1973
  2. LIPITOR [Concomitant]
     Active Substance: ATORVASTATIN CALCIUM
     Indication: HYPERCHOLESTEROLAEMIA
     Dosage: UNK
     Dates: start: 1993
  3. CALCIUM (UNSPECIFIED) [Concomitant]
     Active Substance: CALCIUM
     Indication: CALCIUM DEFICIENCY
     Dosage: 600 MG, QD
     Dates: start: 1980
  4. ALENDRONATE SODIUM. [Suspect]
     Active Substance: ALENDRONATE SODIUM
     Indication: OSTEOPENIA
     Dosage: 70 MG, UNK
     Route: 048
     Dates: start: 20080229, end: 20101111
  5. FOSAMAX [Suspect]
     Active Substance: ALENDRONATE SODIUM
     Indication: OSTEOPENIA
     Dosage: 10 MG, UNK
     Route: 048
     Dates: start: 20000427, end: 20010717
  6. FOSAMAX [Suspect]
     Active Substance: ALENDRONATE SODIUM
     Dosage: 70 MG, UNK
     Route: 048
     Dates: start: 20010717, end: 20080423

REACTIONS (22)
  - Limb operation [Unknown]
  - Femur fracture [Unknown]
  - Osteoporosis [Unknown]
  - Hypertension [Unknown]
  - Fluid retention [Unknown]
  - Bone fragmentation [Unknown]
  - Adverse event [Unknown]
  - Femur fracture [Unknown]
  - Low turnover osteopathy [Unknown]
  - Osteoarthritis [Unknown]
  - Fall [Unknown]
  - Intramedullary rod insertion [Unknown]
  - Hypokalaemia [Unknown]
  - Depression [Unknown]
  - Ovarian cystectomy [Unknown]
  - Fall [Unknown]
  - Skin cyst excision [Unknown]
  - Gastrooesophageal reflux disease [Unknown]
  - Packed red blood cell transfusion [Unknown]
  - Intramedullary rod insertion [Unknown]
  - Hypothyroidism [Unknown]
  - Contusion [Unknown]

NARRATIVE: CASE EVENT DATE: 2000
